FAERS Safety Report 5226458-6 (Version None)
Quarter: 2007Q1

REPORT INFORMATION
  Report Type: 
  Country: None (occurrence: None)
  Receive Date: 20070201
  Receipt Date: 20070110
  Transmission Date: 20070707
  Serious: Yes (Other)
  Sender: FDA-Public Use
  Company Number: US-PFIZER INC-2006027746

PATIENT
  Sex: Female
  Weight: 61.2 kg

DRUGS (10)
  1. BEXTRA [Suspect]
     Indication: BACK PAIN
     Dates: start: 20030501, end: 20050301
  2. OXYCONTIN [Concomitant]
  3. OXYCODONE HCL [Concomitant]
  4. NEURONTIN [Concomitant]
  5. PREVACID [Concomitant]
  6. CYCLOBENZAPRINE HCL [Concomitant]
  7. ZOLOFT [Concomitant]
  8. PAXIL [Concomitant]
  9. LEXAPRO [Concomitant]
  10. PREMARIN [Concomitant]

REACTIONS (1)
  - RASH [None]
